FAERS Safety Report 6392038-2 (Version None)
Quarter: 2009Q4

REPORT INFORMATION
  Report Type: 
  Country: None (occurrence: None)
  Receive Date: 20091007
  Receipt Date: 20091001
  Transmission Date: 20100525
  Serious: Yes (Death, Hospitalization)
  Sender: FDA-Public Use
  Company Number: FR-ROCHE-659784

PATIENT
  Sex: Male

DRUGS (24)
  1. CAPECITABINE [Suspect]
     Indication: GASTRIC CANCER
     Dosage: CYCLIC (3 CURES)
     Route: 065
     Dates: start: 20070625
  2. CAPECITABINE [Suspect]
     Dosage: CYCLIC (2 CURES)
     Route: 065
     Dates: start: 20070917, end: 20071022
  3. EPIRUBICIN HCL [Suspect]
     Indication: GASTRIC CANCER
     Dosage: CYCLIC (3 CURES); DRUG: EPIRUBICIN HCL (EPIRUBICIN HCL)
     Route: 065
     Dates: start: 20070625
  4. EPIRUBICIN HCL [Suspect]
     Dosage: CYCLIC (2 CURES)
     Route: 065
     Dates: start: 20070917, end: 20071022
  5. CISPLATIN [Suspect]
     Indication: GASTRIC CANCER
     Dosage: CYCLIC (3 CURES)
     Route: 065
     Dates: start: 20070625
  6. CISPLATIN [Suspect]
     Dosage: CYCLIC (2 CURES)
     Route: 065
     Dates: start: 20070917, end: 20071022
  7. IRINOTECAN HCL [Suspect]
     Indication: GASTRIC CANCER
     Dosage: CYCLIC (4 CURES); DRUG: IRINOTECAN HCL (IRINOTECAN HCL)
     Route: 065
     Dates: start: 20071030
  8. IRINOTECAN HCL [Suspect]
     Dosage: CYCLIC (1 CURE)
     Route: 065
     Dates: start: 20071227, end: 20080117
  9. FLUOROURACIL [Suspect]
     Indication: GASTRIC CANCER
     Dosage: CYCLIC (4 CURES); ROUTE: INTRAVENOUS DRIP
     Route: 042
     Dates: start: 20071030
  10. FLUOROURACIL [Suspect]
     Dosage: CYCLIC (4 CURES); ROUTE: INTRAVENOUS BOLUS
     Route: 042
     Dates: start: 20071030
  11. FLUOROURACIL [Suspect]
     Dosage: CYCLIC (1 CURE); ROUTE: INTRAVENOUS DRIP
     Route: 042
     Dates: start: 20071227, end: 20080117
  12. FLUOROURACIL [Suspect]
     Dosage: CYCLIC (1 CURE); ROUTE: INTRAVENOUS BOLUS
     Route: 042
     Dates: start: 20071227, end: 20080117
  13. FOLINIC ACID [Suspect]
     Indication: GASTRIC CANCER
     Dosage: CYCLIC (4 CURES)
     Route: 065
     Dates: start: 20071030
  14. FOLINIC ACID [Suspect]
     Dosage: CYCLIC (1 CURE)
     Route: 065
     Dates: start: 20071227, end: 20080117
  15. OXYNORM [Concomitant]
  16. HYPNOVEL [Concomitant]
  17. TRANXENE [Concomitant]
  18. LANTUS [Concomitant]
     Dates: start: 19950101
  19. MORPHINE [Concomitant]
     Indication: PAIN
     Route: 042
     Dates: start: 20070101
  20. ATARAX [Concomitant]
     Indication: PAIN
     Dosage: ONE TABLET ORALLY
     Route: 048
     Dates: start: 20070101
  21. SKENAN [Concomitant]
     Indication: PAIN
     Route: 048
     Dates: start: 20070101
  22. ACTISKENAN [Concomitant]
     Indication: PAIN
     Dosage: AS NEEDED
     Dates: start: 20070101
  23. RIVOTRIL [Concomitant]
     Indication: PAIN
     Route: 048
     Dates: start: 20070101
  24. XANAX [Concomitant]
     Indication: PAIN
     Route: 048
     Dates: start: 20070101

REACTIONS (17)
  - AGITATION [None]
  - ALLODYNIA [None]
  - ANXIETY [None]
  - BACK PAIN [None]
  - BALANCE DISORDER [None]
  - CONFUSIONAL STATE [None]
  - FEEDING DISORDER [None]
  - GASTRIC CANCER STAGE IV [None]
  - GENERAL PHYSICAL HEALTH DETERIORATION [None]
  - HAEMOGLOBIN DECREASED [None]
  - HALLUCINATION [None]
  - HYPONATRAEMIA [None]
  - INCOHERENT [None]
  - LEUKOCYTOSIS [None]
  - MALIGNANT NEOPLASM PROGRESSION [None]
  - PAIN IN EXTREMITY [None]
  - SYSTEMIC INFLAMMATORY RESPONSE SYNDROME [None]
